FAERS Safety Report 5167289-5 (Version None)
Quarter: 2006Q4

REPORT INFORMATION
  Report Type: 
  Country: None (occurrence: None)
  Receive Date: 20061130
  Receipt Date: 20061116
  Transmission Date: 20070319
  Serious: Yes (Other)
  Sender: FDA-Public Use
  Company Number: 2006SP006722

PATIENT
  Age: 66 Year
  Sex: Female

DRUGS (2)
  1. PEG-INTRON [Suspect]
     Indication: HEPATITIS C
     Dosage: SC
     Route: 058
     Dates: start: 20061015
  2. RIBAVIRIN [Suspect]
     Indication: HEPATITIS C
     Dosage: PO
     Route: 048
     Dates: start: 20061015

REACTIONS (10)
  - CHILLS [None]
  - DEHYDRATION [None]
  - DIARRHOEA [None]
  - HAEMORRHAGE [None]
  - HEADACHE [None]
  - INJECTION SITE BRUISING [None]
  - PAIN [None]
  - PYREXIA [None]
  - RED BLOOD CELL ABNORMALITY [None]
  - VOMITING [None]
